FAERS Safety Report 25030928 (Version 2)
Quarter: 2025Q1

REPORT INFORMATION
  Report Type: Spontaneous
  Country: US (occurrence: US)
  Receive Date: 20250303
  Receipt Date: 20250331
  Transmission Date: 20250408
  Serious: No
  Sender: LUPIN
  Company Number: US-LUPIN PHARMACEUTICALS INC.-2025-01853

PATIENT
  Age: 80 Year

DRUGS (1)
  1. CEFPROZIL [Suspect]
     Active Substance: CEFPROZIL
     Indication: Sinusitis
     Dosage: 1 DOSAGE FORM, BID, 1 DOSE IN THE EVENING AND 1 DOSE AT NIGH

REACTIONS (3)
  - Pruritus [Unknown]
  - Nervousness [Unknown]
  - Product quality issue [Unknown]
